FAERS Safety Report 7366704-6 (Version None)
Quarter: 2011Q1

REPORT INFORMATION
  Report Type: 
  Country: None (occurrence: None)
  Receive Date: 20110322
  Receipt Date: 20110311
  Transmission Date: 20110831
  Serious: Yes (Other)
  Sender: FDA-Public Use
  Company Number: US-PFIZER INC-2004063314

PATIENT
  Sex: Male

DRUGS (5)
  1. RISPERDAL [Concomitant]
     Dosage: 4 MG, 2X/DAY
  2. NEURONTIN [Suspect]
     Indication: BIPOLAR DISORDER
     Dosage: 800 MG, 3X/DAY
     Dates: start: 20030724
  3. CELEXA [Concomitant]
     Dosage: 10 MG, DAILY
  4. WELLBUTRIN SR [Concomitant]
     Dosage: 150 MG, DAILY
  5. COGENTIN [Concomitant]
     Dosage: 1 MG, AT BEDTIME

REACTIONS (4)
  - ANXIETY [None]
  - EMOTIONAL DISTRESS [None]
  - SUICIDAL IDEATION [None]
  - INJURY [None]
